FAERS Safety Report 9366391 (Version 3)
Quarter: 2013Q3

REPORT INFORMATION
  Report Type: Spontaneous
  Country: FR (occurrence: FR)
  Receive Date: 20130625
  Receipt Date: 20130717
  Transmission Date: 20140515
  Serious: Yes (Disabling, Other)
  Sender: FDA-Public Use
  Company Number: FR-JNJFOC-20130611336

PATIENT
  Age: 82 Year
  Sex: Male

DRUGS (5)
  1. ZYTIGA [Suspect]
     Indication: PROSTATE CANCER
     Route: 048
  2. PREDNISONE [Concomitant]
     Route: 065
  3. XEROQUEL [Concomitant]
     Route: 065
  4. EFFEXOR [Concomitant]
     Route: 065
  5. TEMESTA [Concomitant]
     Route: 065

REACTIONS (2)
  - Tooth loss [Unknown]
  - Prostatic specific antigen increased [Unknown]
